FAERS Safety Report 6661108-3 (Version None)
Quarter: 2010Q1

REPORT INFORMATION
  Report Type: 
  Country: None (occurrence: None)
  Receive Date: 20100326
  Receipt Date: 20100312
  Transmission Date: 20100710
  Serious: Yes (Other)
  Sender: FDA-Public Use
  Company Number: B0639739A

PATIENT
  Age: 56 Year
  Sex: Male

DRUGS (1)
  1. ACITRETIN [Suspect]
     Indication: LEUKOPLAKIA ORAL
     Dosage: 25/MG/ PER DAY/ ORAL
     Route: 048

REACTIONS (3)
  - HAEMORRHAGE [None]
  - PRURITUS [None]
  - SKIN EXFOLIATION [None]
